FAERS Safety Report 6680030-X (Version None)
Quarter: 2010Q2

REPORT INFORMATION
  Report Type: 
  Country: None (occurrence: None)
  Receive Date: 20100413
  Receipt Date: 20100401
  Transmission Date: 20101027
  Serious: Yes (Death)
  Sender: FDA-Public Use
  Company Number: JP-AMGEN-US403686

PATIENT
  Age: 68 Year
  Sex: Female

DRUGS (5)
  1. ENBREL [Suspect]
     Indication: RHEUMATOID ARTHRITIS
     Route: 058
     Dates: start: 20100220, end: 20100311
  2. GASMOTIN [Concomitant]
     Dosage: NOT PROVIDED
     Route: 048
     Dates: end: 20100324
  3. OMEPRAL [Concomitant]
     Dosage: NOT SPECIFIED
     Route: 048
     Dates: end: 20100324
  4. METALCAPTASE [Concomitant]
     Dosage: NOT SPECIFIED
     Route: 048
     Dates: end: 20100328
  5. PREDNISOLONE [Concomitant]
     Dosage: NOT PROVIDED
     Route: 048
     Dates: end: 20100328

REACTIONS (2)
  - DISSEMINATED INTRAVASCULAR COAGULATION [None]
  - STAPHYLOCOCCAL SEPSIS [None]
